FAERS Safety Report 8364134-1 (Version None)
Quarter: 2012Q2

REPORT INFORMATION
  Report Type: 
  Country: None (occurrence: None)
  Receive Date: 20120516
  Receipt Date: 20120507
  Transmission Date: 20120825
  Serious: Yes (Other)
  Sender: FDA-Public Use
  Company Number: FR-JNJFOC-20120507938

PATIENT
  Sex: Female

DRUGS (2)
  1. DOXORUBICIN HCL [Suspect]
     Indication: OVARIAN CANCER
     Route: 042
  2. CARBOPLATIN [Suspect]
     Indication: OVARIAN CANCER
     Route: 065

REACTIONS (19)
  - HYPERSENSITIVITY [None]
  - DIARRHOEA [None]
  - FATIGUE [None]
  - MUCOSAL INFLAMMATION [None]
  - THROMBOCYTOPENIA [None]
  - VOMITING [None]
  - ANAEMIA [None]
  - ALOPECIA [None]
  - NEUTROPENIA [None]
  - CONSTIPATION [None]
  - PALMAR-PLANTAR ERYTHRODYSAESTHESIA SYNDROME [None]
  - OVARIAN CANCER [None]
  - ARTHRALGIA [None]
  - INFECTION [None]
  - PERIPHERAL SENSORY NEUROPATHY [None]
  - PERIPHERAL MOTOR NEUROPATHY [None]
  - FEBRILE NEUTROPENIA [None]
  - CARDIAC DISORDER [None]
  - NAUSEA [None]
